FAERS Safety Report 14587521 (Version 4)
Quarter: 2018Q2

REPORT INFORMATION
  Report Type: Report from Study
  Country: PL (occurrence: PL)
  Receive Date: 20180301
  Receipt Date: 20180410
  Transmission Date: 20180711
  Serious: Yes (Death)
  Sender: FDA-Public Use
  Company Number: PL-EISAI MEDICAL RESEARCH-EC-2018-036678

PATIENT
  Age: 82 Year
  Sex: Male
  Weight: 76 kg

DRUGS (8)
  1. POLOCARD [Concomitant]
     Active Substance: ASPIRIN
  2. EVEROLIMUS. [Suspect]
     Active Substance: EVEROLIMUS
     Indication: RENAL CELL CARCINOMA
     Route: 048
     Dates: start: 20171219, end: 20180225
  3. AMLODIPIN [Concomitant]
     Active Substance: AMLODIPINE BESYLATE
  4. AMOKSYCYCLINA [Concomitant]
  5. NEBIVOLOL. [Concomitant]
     Active Substance: NEBIVOLOL
  6. OMEPRAZOL [Concomitant]
     Active Substance: OMEPRAZOLE
  7. LENVATINIB [Suspect]
     Active Substance: LENVATINIB
     Indication: RENAL CELL CARCINOMA
     Dosage: BLINDED DOSAGE
     Route: 048
     Dates: start: 20171219, end: 20180225
  8. ENOXAPARIN [Concomitant]
     Active Substance: ENOXAPARIN

REACTIONS (1)
  - Cardiopulmonary failure [Fatal]

NARRATIVE: CASE EVENT DATE: 20180226
